FAERS Safety Report 15992968 (Version 1)
Quarter: 2019Q1

REPORT INFORMATION
  Report Type: Spontaneous
  Country: None (occurrence: US)
  Receive Date: 20190221
  Receipt Date: 20190221
  Transmission Date: 20190418
  Serious: No
  Sender: FDA-Public Use
  Company Number: US-CUTISPHARMA, INC.-2063043

PATIENT
  Age: 8 Year
  Sex: Female

DRUGS (1)
  1. FIRVANQ [Suspect]
     Active Substance: VANCOMYCIN HYDROCHLORIDE
     Route: 048

REACTIONS (1)
  - Tooth discolouration [Unknown]
